FAERS Safety Report 22336700 (Version 1)
Quarter: 2023Q2

REPORT INFORMATION
  Report Type: Spontaneous
  Country: US (occurrence: None)
  Receive Date: 20230517
  Receipt Date: 20230517
  Transmission Date: 20230721
  Serious: Yes (Hospitalization)
  Sender: FDA-Public Use
  Company Number: None

PATIENT
  Age: 55 Year
  Sex: Female
  Weight: 90.45 kg

DRUGS (3)
  1. EMGALITY [Suspect]
     Active Substance: GALCANEZUMAB-GNLM
     Indication: Headache
     Dates: start: 20230512, end: 20230512
  2. Valsartan baby aspirin [Concomitant]
  3. CARVEDILLOL [Concomitant]

REACTIONS (2)
  - Blood pressure increased [None]
  - Drug monitoring procedure not performed [None]

NARRATIVE: CASE EVENT DATE: 20230513
